FAERS Safety Report 9230096 (Version 1)
Quarter: 2013Q2

REPORT INFORMATION
  Report Type: Spontaneous
  Country: US (occurrence: None)
  Receive Date: 20130412
  Receipt Date: 20130412
  Transmission Date: 20140414
  Serious: Yes (Hospitalization)
  Sender: FDA-Public Use
  Company Number: None

PATIENT
  Age: 86 Year
  Sex: Male
  Weight: 63.05 kg

DRUGS (15)
  1. ZOLPIEM [Suspect]
     Indication: INSOMNIA
     Route: 048
  2. PHENAZOPYRIDINE [Concomitant]
  3. BISACODYL [Concomitant]
  4. HYDROCODONE/ACETAMINOPHEN [Concomitant]
  5. INSULIN LISPRO [Concomitant]
  6. METOPROLOL TARTRATE [Concomitant]
  7. OMEPRAZOLE [Concomitant]
  8. MULTIVITAMIN [Concomitant]
  9. LEVOTHYROXINE [Concomitant]
  10. ISOSORBIDE MONONITRATE [Concomitant]
  11. DORZOLAMIDE [Concomitant]
  12. ATORVASTATIN [Concomitant]
  13. ASPIRIN [Concomitant]
  14. AMLODIPINE [Concomitant]
  15. HEPARIN [Concomitant]

REACTIONS (6)
  - Faecal incontinence [None]
  - Haemorrhage [None]
  - Laceration [None]
  - Fall [None]
  - Photopsia [None]
  - Amnesia [None]
